FAERS Safety Report 15240912 (Version 1)
Quarter: 2018Q3

REPORT INFORMATION
  Report Type: Spontaneous
  Country: US (occurrence: US)
  Receive Date: 20180711
  Receipt Date: 20180711
  Transmission Date: 20181010
  Serious: Yes (Hospitalization)
  Sender: FDA-Public Use
  Company Number: None

PATIENT
  Age: 65 Year
  Sex: Male

DRUGS (17)
  1. ZELBORAF [Concomitant]
     Active Substance: VEMURAFENIB
  2. AMLODIPINE [Concomitant]
     Active Substance: AMLODIPINE BESYLATE
  3. ATORVASTATIN [Concomitant]
     Active Substance: ATORVASTATIN
  4. CLONIDINE. [Concomitant]
     Active Substance: CLONIDINE
  5. METOPROL SUC [Concomitant]
  6. POT CHLORIDE [Concomitant]
     Active Substance: POTASSIUM CHLORIDE
  7. EPLERENONE. [Concomitant]
     Active Substance: EPLERENONE
  8. LEVOTHYROXIN [Concomitant]
     Active Substance: LEVOTHYROXINE
  9. BD PEN NEEDL MIS [Concomitant]
  10. LANTUS [Concomitant]
     Active Substance: INSULIN GLARGINE
  11. PANTOPRAZOLE [Concomitant]
     Active Substance: PANTOPRAZOLE
  12. PROVENTIL HFA [Concomitant]
     Active Substance: ALBUTEROL SULFATE
  13. RAMIPRIL. [Concomitant]
     Active Substance: RAMIPRIL
  14. SERTRALINE [Concomitant]
     Active Substance: SERTRALINE HYDROCHLORIDE
  15. METOLAZONE. [Concomitant]
     Active Substance: METOLAZONE
  16. NOVOLOG [Concomitant]
     Active Substance: INSULIN ASPART
  17. COTELLIC [Suspect]
     Active Substance: COBIMETINIB
     Indication: RESPIRATORY DISORDER
     Route: 048
     Dates: start: 20180419

REACTIONS (1)
  - Wound [None]
